FAERS Safety Report 20551936 (Version 1)
Quarter: 2022Q1

REPORT INFORMATION
  Report Type: Spontaneous
  Country: US (occurrence: US)
  Receive Date: 20220304
  Receipt Date: 20220304
  Transmission Date: 20220423
  Serious: No
  Sender: FDA-Public Use
  Company Number: US-009507513-2202USA001908

PATIENT
  Sex: Female

DRUGS (4)
  1. STROMECTOL [Suspect]
     Active Substance: IVERMECTIN
     Indication: Enterobiasis
     Dosage: UNK
     Route: 048
     Dates: start: 2019
  2. METRONIDAZOLE [Suspect]
     Active Substance: METRONIDAZOLE
     Indication: Enterobiasis
     Dosage: UNK
     Route: 048
  3. BENZNIDAZOLE [Suspect]
     Active Substance: BENZNIDAZOLE
     Indication: Enterobiasis
     Dosage: UNK
     Route: 048
  4. ALBENDAZOLE [Suspect]
     Active Substance: ALBENDAZOLE
     Indication: Enterobiasis
     Route: 048

REACTIONS (1)
  - Drug ineffective [Not Recovered/Not Resolved]
